FAERS Safety Report 16384281 (Version 1)
Quarter: 2019Q2

REPORT INFORMATION
  Report Type: Spontaneous
  Country: ES (occurrence: ES)
  Receive Date: 20190603
  Receipt Date: 20190603
  Transmission Date: 20190711
  Serious: Yes (Other)
  Sender: FDA-Public Use
  Company Number: PHHY2019ES122618

PATIENT
  Age: 54 Year
  Sex: Male

DRUGS (4)
  1. SUNITINIB [Suspect]
     Active Substance: SUNITINIB
     Indication: PANCREATIC NEUROENDOCRINE TUMOUR
     Dosage: 25 MG, QD
     Route: 065
     Dates: start: 201806
  2. EVEROLIMUS. [Suspect]
     Active Substance: EVEROLIMUS
     Indication: PANCREATIC NEUROENDOCRINE TUMOUR
     Dosage: UNK
     Route: 065
  3. SOMATULINA [Suspect]
     Active Substance: LANREOTIDE ACETATE
     Dosage: 120 MG, UNK (21 DAY)
     Route: 065
     Dates: start: 201806
  4. SOMATULINA [Suspect]
     Active Substance: LANREOTIDE ACETATE
     Indication: PANCREATIC NEUROENDOCRINE TUMOUR
     Dosage: 120 MG, UNK (28 DAY)
     Route: 065
     Dates: start: 201106

REACTIONS (4)
  - Neoplasm progression [Unknown]
  - Off label use [Unknown]
  - Injection site abscess [Unknown]
  - Nausea [Unknown]

NARRATIVE: CASE EVENT DATE: 201106
